FAERS Safety Report 22867141 (Version 4)
Quarter: 2025Q3

REPORT INFORMATION
  Report Type: Spontaneous
  Country: US (occurrence: US)
  Receive Date: 20230825
  Receipt Date: 20250708
  Transmission Date: 20251021
  Serious: Yes (Other)
  Sender: GLAXOSMITHKLINE
  Company Number: US-GSK-US2023AMR111608

PATIENT
  Age: 57 Year
  Sex: Female

DRUGS (2)
  1. BENLYSTA [Suspect]
     Active Substance: BELIMUMAB
     Indication: Systemic lupus erythematosus
     Dosage: 200 MG, WE
  2. BENLYSTA [Suspect]
     Active Substance: BELIMUMAB
     Indication: Sicca syndrome

REACTIONS (16)
  - Nephritis [Unknown]
  - Systemic lupus erythematosus [Unknown]
  - Rhinorrhoea [Unknown]
  - Throat irritation [Unknown]
  - Blood potassium decreased [Unknown]
  - Headache [Unknown]
  - Heart rate irregular [Unknown]
  - Back pain [Unknown]
  - Arthralgia [Unknown]
  - Disturbance in attention [Unknown]
  - Loss of personal independence in daily activities [Unknown]
  - Ill-defined disorder [Unknown]
  - Fatigue [Unknown]
  - Product dose omission issue [Unknown]
  - Incorrect dose administered [Unknown]
  - Product use in unapproved indication [Unknown]

NARRATIVE: CASE EVENT DATE: 20250613
